FAERS Safety Report 6474491-9 (Version None)
Quarter: 2009Q4

REPORT INFORMATION
  Report Type: 
  Country: None (occurrence: None)
  Receive Date: 20091204
  Receipt Date: 20091201
  Transmission Date: 20100525
  Serious: Yes (Life-Threatening, Hospitalization, Other)
  Sender: FDA-Public Use
  Company Number: US-ELI_LILLY_AND_COMPANY-US200912000234

PATIENT
  Sex: Female
  Weight: 87.982 kg

DRUGS (13)
  1. BYETTA [Suspect]
     Indication: TYPE 2 DIABETES MELLITUS
     Dosage: 5 UG, 2/D
     Route: 058
  2. BYETTA [Suspect]
     Dosage: 5 UG, 2/D
     Route: 058
     Dates: start: 20090917
  3. LEVEMIR [Concomitant]
     Indication: TYPE 2 DIABETES MELLITUS
     Dosage: 20 U, EACH EVENING
     Dates: start: 20090101
  4. LEVEMIR [Concomitant]
     Dosage: 20 U, EACH MORNING
     Dates: start: 20090901
  5. NOVOLOG [Concomitant]
     Indication: TYPE 2 DIABETES MELLITUS
     Dosage: UNK, OTHER
     Dates: start: 20090101
  6. AMARYL [Concomitant]
     Dosage: UNK, UNKNOWN
  7. GLUCOPHAGE [Concomitant]
     Dosage: UNK, UNKNOWN
  8. AMLODIPINE [Concomitant]
     Indication: BLOOD PRESSURE
     Dosage: 5 MG, DAILY (1/D)
     Dates: start: 20090101
  9. TOPIRAMATE [Concomitant]
     Indication: FIBROMYALGIA
     Dosage: 25 MG, 2/D
     Dates: start: 20090101
  10. CLONIDINE [Concomitant]
     Indication: BLOOD PRESSURE
     Dosage: 0.4 MG, UNK
     Dates: start: 20090101
  11. CRESTOR [Concomitant]
     Dosage: 10 MG, EACH EVENING
     Dates: start: 20090101
  12. MILNACIPRAN [Concomitant]
     Indication: FIBROMYALGIA
     Dosage: UNK, UNKNOWN
     Dates: start: 20091101
  13. AMITRIPTYLINE [Concomitant]
     Indication: BLOOD PRESSURE
     Dosage: 50 MG, EACH EVENING
     Dates: start: 20090101

REACTIONS (9)
  - ABDOMINAL DISCOMFORT [None]
  - BLOOD GLUCOSE INCREASED [None]
  - DEPRESSION [None]
  - OFF LABEL USE [None]
  - PNEUMONIA [None]
  - RESPIRATORY ARREST [None]
  - ULCER HAEMORRHAGE [None]
  - VOMITING [None]
  - WEIGHT DECREASED [None]
